FAERS Safety Report 6122439-9 (Version None)
Quarter: 2009Q1

REPORT INFORMATION
  Report Type: 
  Country: None (occurrence: None)
  Receive Date: 20090316
  Receipt Date: 20090316
  Transmission Date: 20090719
  Serious: Yes (Hospitalization)
  Sender: FDA-Public Use
  Company Number: None

PATIENT
  Age: 46 Year
  Sex: Female
  Weight: 95.709 kg

DRUGS (1)
  1. NUBAIN [Suspect]

REACTIONS (11)
  - BLOOD PRESSURE INCREASED [None]
  - CONFUSIONAL STATE [None]
  - CONVULSION [None]
  - DELUSION [None]
  - FORMICATION [None]
  - HEART RATE INCREASED [None]
  - HYPERHIDROSIS [None]
  - INCOHERENT [None]
  - PAIN [None]
  - PATIENT RESTRAINT [None]
  - SCREAMING [None]
